FAERS Safety Report 25035071 (Version 1)
Quarter: 2025Q1

REPORT INFORMATION
  Report Type: Spontaneous
  Country: BG (occurrence: BG)
  Receive Date: 20250304
  Receipt Date: 20250304
  Transmission Date: 20250408
  Serious: Yes (Other)
  Sender: IMMUNOCORE
  Company Number: BG-Medison-001041

PATIENT

DRUGS (2)
  1. KIMMTRAK [Suspect]
     Active Substance: TEBENTAFUSP-TEBN
     Indication: Metastatic ocular melanoma
     Route: 042
     Dates: start: 20240520
  2. KIMMTRAK [Suspect]
     Active Substance: TEBENTAFUSP-TEBN
     Route: 042
     Dates: start: 20250211

REACTIONS (1)
  - Metastasis [Unknown]

NARRATIVE: CASE EVENT DATE: 20250217
